FAERS Safety Report 23659187 (Version 3)
Quarter: 2024Q3

REPORT INFORMATION
  Report Type: Report from Study
  Country: US (occurrence: US)
  Receive Date: 20240321
  Receipt Date: 20240704
  Transmission Date: 20241017
  Serious: Yes (Death, Life-Threatening, Other)
  Sender: TAKEDA
  Company Number: US-TAKEDA-2024TUS026254

PATIENT
  Age: 65 Year
  Sex: Male

DRUGS (3)
  1. FRUQUINTINIB [Suspect]
     Active Substance: FRUQUINTINIB
     Indication: Rectal cancer
     Dosage: 5 MILLIGRAM, QD
     Route: 048
     Dates: start: 20231220, end: 20240406
  2. FRUQUINTINIB [Suspect]
     Active Substance: FRUQUINTINIB
     Dosage: 5 MILLIGRAM
     Route: 048
  3. ELIQUIS [Concomitant]
     Active Substance: APIXABAN
     Dosage: UNK
     Route: 065

REACTIONS (2)
  - Death [Fatal]
  - Thrombosis [Recovered/Resolved]

NARRATIVE: CASE EVENT DATE: 20240621
